FAERS Safety Report 24641172 (Version 1)
Quarter: 2024Q4

REPORT INFORMATION
  Report Type: Spontaneous
  Country: BE (occurrence: BE)
  Receive Date: 20241120
  Receipt Date: 20241120
  Transmission Date: 20250115
  Serious: Yes (Life-Threatening, Hospitalization)
  Sender: CHEPLAPHARM
  Company Number: BE-MLMSERVICE-20241101-PI247063-00077-1

PATIENT
  Age: 66 Year
  Sex: Female

DRUGS (33)
  1. CAPECITABINE [Suspect]
     Active Substance: CAPECITABINE
     Indication: Metastases to lymph nodes
     Dosage: 625 MG/M2
     Dates: start: 202209
  2. CAPECITABINE [Suspect]
     Active Substance: CAPECITABINE
     Indication: Metastases to kidney
     Dosage: 625 MG/M2
     Dates: start: 202209
  3. CAPECITABINE [Suspect]
     Active Substance: CAPECITABINE
     Indication: Mixed adenoneuroendocrine carcinoma
     Dosage: 625 MG/M2
     Dates: start: 202209
  4. CAPECITABINE [Suspect]
     Active Substance: CAPECITABINE
     Indication: Metastases to lung
     Dosage: 625 MG/M2
     Dates: start: 202209
  5. CAPECITABINE [Suspect]
     Active Substance: CAPECITABINE
     Indication: Neuroendocrine carcinoma metastatic
     Dosage: 625 MG/M2
     Dates: start: 202209
  6. CAPECITABINE [Suspect]
     Active Substance: CAPECITABINE
     Indication: Metastases to lymph nodes
     Dosage: METRONOMIC
     Dates: start: 202306
  7. CAPECITABINE [Suspect]
     Active Substance: CAPECITABINE
     Indication: Metastases to kidney
     Dosage: METRONOMIC
     Dates: start: 202306
  8. CAPECITABINE [Suspect]
     Active Substance: CAPECITABINE
     Indication: Mixed adenoneuroendocrine carcinoma
     Dosage: METRONOMIC
     Dates: start: 202306
  9. CAPECITABINE [Suspect]
     Active Substance: CAPECITABINE
     Indication: Metastases to lung
     Dosage: METRONOMIC
     Dates: start: 202306
  10. CAPECITABINE [Suspect]
     Active Substance: CAPECITABINE
     Indication: Neuroendocrine carcinoma metastatic
     Dosage: METRONOMIC
     Dates: start: 202306
  11. ETOPOSIDE [Suspect]
     Active Substance: ETOPOSIDE
     Indication: Mixed adenoneuroendocrine carcinoma
     Dosage: 4 CYCLES
     Dates: start: 2020, end: 202101
  12. ETOPOSIDE [Suspect]
     Active Substance: ETOPOSIDE
     Indication: Mixed adenoneuroendocrine carcinoma
     Dosage: 10 CYCLES
     Dates: start: 202111, end: 202208
  13. CISPLATIN [Suspect]
     Active Substance: CISPLATIN
     Indication: Mixed adenoneuroendocrine carcinoma
     Dosage: 4 CYCLES
     Dates: start: 2020, end: 202101
  14. TEMOZOLOMIDE [Suspect]
     Active Substance: TEMOZOLOMIDE
     Indication: Mixed adenoneuroendocrine carcinoma
     Dosage: 100 MG/M2
     Dates: start: 202209
  15. TEMOZOLOMIDE [Suspect]
     Active Substance: TEMOZOLOMIDE
     Indication: Gene mutation
     Dosage: 100 MG/M2
     Dates: start: 202209
  16. TEMOZOLOMIDE [Suspect]
     Active Substance: TEMOZOLOMIDE
     Indication: Metastases to kidney
     Dosage: 100 MG/M2
     Dates: start: 202209
  17. TEMOZOLOMIDE [Suspect]
     Active Substance: TEMOZOLOMIDE
     Indication: Metastases to lung
     Dosage: 100 MG/M2
     Dates: start: 202209
  18. TEMOZOLOMIDE [Suspect]
     Active Substance: TEMOZOLOMIDE
     Indication: Metastases to lymph nodes
     Dosage: 100 MG/M2
     Dates: start: 202209
  19. EVEROLIMUS [Suspect]
     Active Substance: EVEROLIMUS
     Indication: Metastases to lung
     Dosage: 5 MG A DAY?DAILY DOSE: 5 MILLIGRAM
     Dates: start: 202211
  20. EVEROLIMUS [Suspect]
     Active Substance: EVEROLIMUS
     Indication: Metastases to kidney
     Dosage: 5 MG A DAY?DAILY DOSE: 5 MILLIGRAM
     Dates: start: 202211
  21. EVEROLIMUS [Suspect]
     Active Substance: EVEROLIMUS
     Indication: Metastases to lymph nodes
     Dosage: 5 MG A DAY?DAILY DOSE: 5 MILLIGRAM
     Dates: start: 202211
  22. EVEROLIMUS [Suspect]
     Active Substance: EVEROLIMUS
     Indication: Mixed adenoneuroendocrine carcinoma
     Dosage: 5 MG A DAY?DAILY DOSE: 5 MILLIGRAM
     Dates: start: 202211
  23. EVEROLIMUS [Suspect]
     Active Substance: EVEROLIMUS
     Indication: Gene mutation
     Dosage: 5 MG A DAY?DAILY DOSE: 5 MILLIGRAM
     Dates: start: 202211
  24. FLUOROURACIL [Suspect]
     Active Substance: FLUOROURACIL
     Indication: Metastases to lung
     Dosage: 2,400 MG/M2 EVERY 3 WEEKS; FIVE CYCLES
     Dates: start: 202302, end: 2023
  25. FLUOROURACIL [Suspect]
     Active Substance: FLUOROURACIL
     Indication: Gene mutation
     Dosage: 2,400 MG/M2 EVERY 3 WEEKS; FIVE CYCLES
     Dates: start: 202302, end: 2023
  26. FLUOROURACIL [Suspect]
     Active Substance: FLUOROURACIL
     Indication: Metastases to lymph nodes
     Dosage: 2,400 MG/M2 EVERY 3 WEEKS; FIVE CYCLES
     Dates: start: 202302, end: 2023
  27. FLUOROURACIL [Suspect]
     Active Substance: FLUOROURACIL
     Indication: Metastases to kidney
     Dosage: 2,400 MG/M2 EVERY 3 WEEKS; FIVE CYCLES
     Dates: start: 202302, end: 2023
  28. FLUOROURACIL [Suspect]
     Active Substance: FLUOROURACIL
     Indication: Mixed adenoneuroendocrine carcinoma
     Dosage: 2,400 MG/M2 EVERY 3 WEEKS; FIVE CYCLES
     Dates: start: 202302, end: 2023
  29. IRINOTECAN [Suspect]
     Active Substance: IRINOTECAN
     Indication: Metastases to kidney
     Dosage: 180 MG/M2 EVERY 3 WEEKS; FIVE CYCLES
     Dates: start: 202302, end: 2023
  30. IRINOTECAN [Suspect]
     Active Substance: IRINOTECAN
     Indication: Gene mutation
     Dosage: 180 MG/M2 EVERY 3 WEEKS; FIVE CYCLES
     Dates: start: 202302, end: 2023
  31. IRINOTECAN [Suspect]
     Active Substance: IRINOTECAN
     Indication: Metastases to lymph nodes
     Dosage: 180 MG/M2 EVERY 3 WEEKS; FIVE CYCLES
     Dates: start: 202302, end: 2023
  32. IRINOTECAN [Suspect]
     Active Substance: IRINOTECAN
     Indication: Mixed adenoneuroendocrine carcinoma
     Dosage: 180 MG/M2 EVERY 3 WEEKS; FIVE CYCLES
     Dates: start: 202302, end: 2023
  33. IRINOTECAN [Suspect]
     Active Substance: IRINOTECAN
     Indication: Metastases to lung
     Dosage: 180 MG/M2 EVERY 3 WEEKS; FIVE CYCLES
     Dates: start: 202302, end: 2023

REACTIONS (2)
  - Cushing^s syndrome [Unknown]
  - Off label use [Recovered/Resolved]

NARRATIVE: CASE EVENT DATE: 20230801
